FAERS Safety Report 25168904 (Version 2)
Quarter: 2025Q2

REPORT INFORMATION
  Report Type: Spontaneous
  Country: US (occurrence: US)
  Receive Date: 20250407
  Receipt Date: 20250602
  Transmission Date: 20250716
  Serious: No
  Sender: NOBELPHARMA AMERICA, LLC
  Company Number: US-Nobelpharma America, LLC-NPA-2025-00438

PATIENT
  Sex: Female

DRUGS (3)
  1. HYFTOR [Suspect]
     Active Substance: SIROLIMUS
     Indication: Benign neoplasm of skin
     Dosage: APPLY 800 MG (2.5CM) TO THE AFFECTED AREA TWICE DAILY
     Dates: start: 20250128
  2. EVEROLIMUS [Concomitant]
     Active Substance: EVEROLIMUS
  3. FELBAMATE [Concomitant]
     Active Substance: FELBAMATE

REACTIONS (5)
  - Dermatitis acneiform [Not Recovered/Not Resolved]
  - Product dose omission issue [Unknown]
  - Product use in unapproved indication [Unknown]
  - Acne [Unknown]
  - Skin haemorrhage [Unknown]
